FAERS Safety Report 4389849-1 (Version None)
Quarter: 2004Q2

REPORT INFORMATION
  Report Type: 
  Country: None (occurrence: None)
  Receive Date: 20040628
  Receipt Date: 20040615
  Transmission Date: 20050107
  Serious: Yes (Hospitalization)
  Sender: FDA-Public Use
  Company Number: K200400752

PATIENT
  Age: 37 Year
  Sex: Female

DRUGS (4)
  1. LEVOXYL [Suspect]
     Indication: HYPOTHYROIDISM
     Dosage: 75 MCG QD ORAL
     Route: 048
     Dates: start: 19990101, end: 20040301
  2. LEVOXYL [Suspect]
     Indication: HYPOTHYROIDISM
     Dosage: 75 MCG QD ORAL
     Route: 048
     Dates: start: 20040301, end: 20040607
  3. LEVOXYL [Suspect]
     Indication: HYPOTHYROIDISM
     Dosage: 75 MCG QD ORAL
     Route: 048
     Dates: start: 20040615
  4. BABYPRIN (ACETYLSALICYLIC ACID) [Concomitant]

REACTIONS (15)
  - ABDOMINAL PAIN UPPER [None]
  - ANXIETY [None]
  - DEPRESSION [None]
  - DYSPEPSIA [None]
  - DYSPNOEA [None]
  - FEELING JITTERY [None]
  - GASTROENTERITIS VIRAL [None]
  - HEART RATE IRREGULAR [None]
  - HYPERHIDROSIS [None]
  - MALAISE [None]
  - MIDDLE INSOMNIA [None]
  - TACHYCARDIA [None]
  - TEMPERATURE INTOLERANCE [None]
  - TREATMENT NONCOMPLIANCE [None]
  - WEIGHT DECREASED [None]
